FAERS Safety Report 8947865 (Version 1)
Quarter: 2012Q4

REPORT INFORMATION
  Report Type: Spontaneous
  Country: US (occurrence: None)
  Receive Date: 20121203
  Receipt Date: 20121203
  Transmission Date: 20130627
  Serious: Yes (Hospitalization)
  Sender: FDA-Public Use
  Company Number: None

PATIENT
  Age: 70 Year
  Sex: Male
  Weight: 80 kg

DRUGS (5)
  1. DOCETAXEL (TAXOTERE) [Suspect]
     Indication: UROTHELIAL CARCINOMA
     Dosage: 60 mg Once q 21 days IV
     Route: 042
     Dates: start: 20121016
  2. LAPATINIB [Suspect]
     Indication: UROTHELIAL CARCINOMA
     Dosage: 1250 mg OD PO
     Route: 048
     Dates: start: 20121016, end: 20121022
  3. OMEPRAZOLE [Concomitant]
  4. MAGNESIUM CITRATE [Concomitant]
  5. ADVIL [Concomitant]

REACTIONS (9)
  - Malaise [None]
  - Diarrhoea [None]
  - Vomiting [None]
  - Abdominal pain [None]
  - Nausea [None]
  - Neutrophil count decreased [None]
  - Blood creatinine increased [None]
  - Blood bilirubin increased [None]
  - Blood glucose increased [None]
